FAERS Safety Report 6283839-X (Version None)
Quarter: 2009Q3

REPORT INFORMATION
  Report Type: 
  Country: None (occurrence: None)
  Receive Date: 20090724
  Receipt Date: 20090715
  Transmission Date: 20100115
  Serious: Yes (Other)
  Sender: FDA-Public Use
  Company Number: FR-ASTRAZENECA-2009SE04992

PATIENT
  Age: 341 Month
  Sex: Female

DRUGS (2)
  1. NEXIUM [Suspect]
     Indication: ABDOMINAL PAIN UPPER
     Route: 048
     Dates: start: 20090401
  2. KEPPRA [Concomitant]
     Indication: EPILEPSY
     Route: 048
     Dates: start: 20061001

REACTIONS (2)
  - CONDITION AGGRAVATED [None]
  - PARTIAL SEIZURES [None]
